FAERS Safety Report 20488976 (Version 1)
Quarter: 2022Q1

REPORT INFORMATION
  Report Type: Spontaneous
  Country: DE (occurrence: DE)
  Receive Date: 20220218
  Receipt Date: 20220218
  Transmission Date: 20220423
  Serious: Yes (Other)
  Sender: FDA-Public Use
  Company Number: DE-EMBRYOTOX-202008528

PATIENT
  Age: 1 Day
  Sex: Male

DRUGS (2)
  1. LAMOTRIGINE [Suspect]
     Active Substance: LAMOTRIGINE
     Indication: Epilepsy
     Dosage: 400 [MG/D (UP TO 300 MG/D) ] , ADDITIONAL INFO : 0. - 39.4. GESTATIONAL WEEK
     Route: 064
     Dates: start: 20200211, end: 20201114
  2. LEVETIRACETAM [Suspect]
     Active Substance: LEVETIRACETAM
     Indication: Epilepsy
     Dosage: 3000 MILLIGRAM DAILY; 3000 [MG/D (2X1500 MG) ] , ADDITIONAL INFO : 0. - 39.4. GESTATIONAL WEEK
     Route: 064
     Dates: start: 20200211, end: 20201114

REACTIONS (2)
  - Neonatal infection [Recovered/Resolved]
  - Thrombocytopenia neonatal [Unknown]

NARRATIVE: CASE EVENT DATE: 20201101
